FAERS Safety Report 25017714 (Version 1)
Quarter: 2025Q1

REPORT INFORMATION
  Report Type: Spontaneous
  Country: DE (occurrence: DE)
  Receive Date: 20250227
  Receipt Date: 20250227
  Transmission Date: 20250408
  Serious: Yes (Other)
  Sender: AUROBINDO
  Company Number: DE-TEVA-VS-3271370

PATIENT
  Age: 74 Year
  Sex: Female

DRUGS (3)
  1. BISOPROLOL FUMARATE [Suspect]
     Active Substance: BISOPROLOL FUMARATE
     Indication: Product used for unknown indication
     Route: 065
  2. CANDESARTAN [Suspect]
     Active Substance: CANDESARTAN
     Indication: Hypertension
     Route: 048
     Dates: start: 2024
  3. CANDESARTAN [Suspect]
     Active Substance: CANDESARTAN
     Route: 048
     Dates: start: 2024

REACTIONS (12)
  - Hypertension [Unknown]
  - Pruritus [Not Recovered/Not Resolved]
  - Back pain [Recovered/Resolved]
  - Eye irritation [Unknown]
  - Lymphadenopathy [Unknown]
  - Scratch [Unknown]
  - Lymphadenitis [Unknown]
  - Head injury [Unknown]
  - Eye pruritus [Unknown]
  - Abdominal pain upper [Recovered/Resolved]
  - Chest pain [Recovered/Resolved]
  - Wrong technique in product usage process [Unknown]

NARRATIVE: CASE EVENT DATE: 20240101
